FAERS Safety Report 5363638-3 (Version None)
Quarter: 2007Q2

REPORT INFORMATION
  Report Type: 
  Country: None (occurrence: None)
  Receive Date: 20070620
  Receipt Date: 20070613
  Transmission Date: 20071010
  Serious: Yes (Death)
  Sender: FDA-Public Use
  Company Number: US-PURDUE-USA_2007_0027870

PATIENT
  Age: 70 Year
  Sex: Male

DRUGS (2)
  1. OXYCONTIN [Suspect]
     Indication: DIABETIC NEUROPATHY
     Dosage: 60 MG, Q12H
  2. OTHER ANALGESICS AND ANTIPYRETICS [Concomitant]

REACTIONS (2)
  - COMPLETED SUICIDE [None]
  - INADEQUATE ANALGESIA [None]
